FAERS Safety Report 18049190 (Version 2)
Quarter: 2020Q3

REPORT INFORMATION
  Report Type: Spontaneous
  Country: US (occurrence: US)
  Receive Date: 20200721
  Receipt Date: 20200817
  Transmission Date: 20201103
  Serious: No
  Sender: FDA-Public Use
  Company Number: US-PFIZER INC-2020277653

PATIENT
  Age: 67 Year
  Sex: Female
  Weight: 118.84 kg

DRUGS (13)
  1. LEVOTHYROXINE. [Concomitant]
     Active Substance: LEVOTHYROXINE
     Dosage: 0.88 UG, DAILY [STARTED BEFORE 04JUL2020]
  2. MONTELUKAST SODIUM. [Concomitant]
     Active Substance: MONTELUKAST SODIUM
     Dosage: 10 MG, 1X/DAY [STARTED BEFORE 04JUL2020]
  3. VITAMIN B COMPLEX [Concomitant]
     Active Substance: CYANOCOBALAMIN\DEXPANTHENOL\NIACINAMIDE\PYRIDOXINE HYDROCHLORIDE\RIBOFLAVIN 5^-PHOSPHATE SODIUM\THIAMINE HYDROCHLORIDE\VITAMIN B COMPLEX
     Indication: VITAMIN SUPPLEMENTATION
     Dosage: UNK, 1X/DAY [STARTED BEFORE 04JUL2020]
  4. KRILL OIL [Concomitant]
     Active Substance: DIETARY SUPPLEMENT\KRILL OIL
     Indication: VITAMIN SUPPLEMENTATION
     Dosage: 108 MG, DAILY [STARTED BEFORE 04JUL2020]
  5. LETROZOLE. [Concomitant]
     Active Substance: LETROZOLE
     Dosage: 2.5 MG, 1X/DAY [STARTED BEFORE 04JUL2020]
  6. CALCIUM?D3 [Concomitant]
     Indication: VITAMIN SUPPLEMENTATION
     Dosage: UNK, 1X/DAY (600 MG?20 MCG ONCE DAILY)
  7. CO Q 10 [COD?LIVER OIL;RETINOL;TOCOPHEROL;UBIDECARENONE;VITAMIN D NOS] [Concomitant]
     Indication: VITAMIN SUPPLEMENTATION
     Dosage: 300 MG, DAILY [STARTED BEFORE 04JUL2020]
  8. IBRANCE [Suspect]
     Active Substance: PALBOCICLIB
     Dosage: 125 MG, CYCLIC [125MG ONCE DAILY AT 8 PM FOR 21 DAYS, THEN OFF FOR 7 DAYS OFF]
     Dates: start: 20200811
  9. ATENOLOL. [Concomitant]
     Active Substance: ATENOLOL
     Indication: BLOOD PRESSURE ABNORMAL
     Dosage: 50 MG, DAILY [STARTED BEFORE 04JUL2020]
  10. IBRANCE [Suspect]
     Active Substance: PALBOCICLIB
     Indication: METASTASES TO BREAST
     Dosage: 125 MG, CYCLIC [125MG ONCE DAILY AT 8 PM FOR 21 DAYS, THEN OFF FOR 7 DAYS OFF]
     Dates: start: 20200707
  11. ELIQUIS [Concomitant]
     Active Substance: APIXABAN
     Indication: ANTICOAGULANT THERAPY
     Dosage: 5 MG, 2X/DAY [STARTED BEFORE 04JUL2020]
  12. POTASSIUM [Concomitant]
     Active Substance: POTASSIUM
     Dosage: 20 MEQ, DAILY [STARTED BEFORE 04JUL2020]
  13. ATORVASTATIN [Concomitant]
     Active Substance: ATORVASTATIN
     Indication: BLOOD CHOLESTEROL INCREASED
     Dosage: 10 MG, 1X/DAY [STARTED BEFORE 04JUL2020]

REACTIONS (3)
  - Blood test abnormal [Recovering/Resolving]
  - Gait disturbance [Unknown]
  - Condition aggravated [Unknown]

NARRATIVE: CASE EVENT DATE: 20200804
